FAERS Safety Report 15624385 (Version 1)
Quarter: 2018Q4

REPORT INFORMATION
  Report Type: Spontaneous
  Country: JP (occurrence: JP)
  Receive Date: 20181116
  Receipt Date: 20181116
  Transmission Date: 20190205
  Serious: Yes (Death, Life-Threatening, Hospitalization)
  Sender: FDA-Public Use
  Company Number: JP-ROCHE-2206680

PATIENT
  Age: 81 Year
  Sex: Female
  Weight: 51 kg

DRUGS (2)
  1. XELODA [Suspect]
     Active Substance: CAPECITABINE
     Indication: RECTAL CANCER
     Route: 048
     Dates: start: 20181004, end: 201810
  2. BESOFTEN [Concomitant]
     Active Substance: PENTOSAN POLYSULFATE SODIUM
     Route: 003
     Dates: start: 20180926

REACTIONS (5)
  - Gastrointestinal inflammation [Fatal]
  - Stomatitis [Unknown]
  - Disseminated intravascular coagulation [Fatal]
  - Sepsis [Fatal]
  - Multiple organ dysfunction syndrome [Fatal]

NARRATIVE: CASE EVENT DATE: 20181005
